FAERS Safety Report 6316131-5 (Version None)
Quarter: 2009Q3

REPORT INFORMATION
  Report Type: 
  Country: None (occurrence: None)
  Receive Date: 20090820
  Receipt Date: 20070710
  Transmission Date: 20100115
  Serious: Yes (Other)
  Sender: FDA-Public Use
  Company Number: US-ASTRAZENECA-2006UW12061

PATIENT
  Age: 463 Month
  Sex: Female
  Weight: 55.8 kg

DRUGS (10)
  1. SEROQUEL [Suspect]
     Dosage: 50-600 MG
     Route: 048
     Dates: start: 20040913
  2. ZYPREXA [Suspect]
     Route: 065
  3. RISPERDAL [Concomitant]
  4. REMERON [Concomitant]
     Dates: start: 20040913
  5. LEXAPRO [Concomitant]
     Route: 048
     Dates: start: 20040120
  6. COGENTIN [Concomitant]
     Dates: start: 20040913
  7. GLUCOPHAGE [Concomitant]
     Dates: start: 20040913
  8. HALOPERIDOL DECANOATE [Concomitant]
     Indication: PSYCHOTIC DISORDER
     Route: 030
     Dates: start: 20030526
  9. LANTUS [Concomitant]
     Dosage: 20-50 UNITS
     Dates: start: 20041229
  10. ELAVIL [Concomitant]
     Dates: start: 20041229

REACTIONS (5)
  - DIABETES MELLITUS [None]
  - DIABETES MELLITUS INADEQUATE CONTROL [None]
  - DIABETIC NEUROPATHY [None]
  - TYPE 1 DIABETES MELLITUS [None]
  - TYPE 2 DIABETES MELLITUS [None]
